FAERS Safety Report 23414775 (Version 2)
Quarter: 2024Q2

REPORT INFORMATION
  Report Type: Other
  Country: US (occurrence: None)
  Receive Date: 20240118
  Receipt Date: 20240430
  Transmission Date: 20240716
  Serious: Yes (Hospitalization)
  Sender: FDA-Public Use
  Company Number: US-ROCHE-3490493

PATIENT
  Age: 57 Year
  Sex: Female

DRUGS (1)
  1. OCREVUS [Suspect]
     Active Substance: OCRELIZUMAB
     Indication: Primary progressive multiple sclerosis
     Dosage: LAST DATE OF TREATMENT: 12/MAY/2021
     Route: 042
     Dates: start: 20181116

REACTIONS (5)
  - Infection [Recovered/Resolved]
  - Pneumonia [Unknown]
  - Urinary tract infection [Unknown]
  - Mental status changes [Unknown]
  - Infection [Not Recovered/Not Resolved]

NARRATIVE: CASE EVENT DATE: 20230925
